FAERS Safety Report 4454963-9 (Version None)
Quarter: 2004Q3

REPORT INFORMATION
  Report Type: 
  Country: None (occurrence: None)
  Receive Date: 20040824
  Receipt Date: 20040519
  Transmission Date: 20050211
  Serious: No
  Sender: FDA-Public Use
  Company Number: SU-2004-002375

PATIENT
  Age: 79 Year
  Sex: Male
  Weight: 64.4108 kg

DRUGS (4)
  1. BENICAR [Suspect]
     Indication: HYPERTENSION
     Dosage: 20 MG QD PO
     Route: 048
     Dates: start: 20040201
  2. ZOCOR [Concomitant]
  3. SYNTHROID [Concomitant]
  4. POTASSIUM [Concomitant]

REACTIONS (2)
  - CONDITION AGGRAVATED [None]
  - MUSCLE SPASMS [None]
